FAERS Safety Report 10191411 (Version 3)
Quarter: 2014Q3

REPORT INFORMATION
  Report Type: Spontaneous
  Country: US (occurrence: US)
  Receive Date: 20140523
  Receipt Date: 20140707
  Transmission Date: 20150326
  Serious: Yes (Other)
  Sender: FDA-Public Use
  Company Number: US-PFIZER INC-2014138853

PATIENT
  Age: 59 Year
  Sex: Male
  Weight: 79.5 kg

DRUGS (6)
  1. SUTENT [Suspect]
     Active Substance: SUNITINIB MALATE
     Dosage: 50 MG, CYCLE (DAILY, 2-WEEK ON AND 1-WEEK OFF) (CYCLE 7)
     Dates: start: 20140315
  2. SUTENT [Suspect]
     Active Substance: SUNITINIB MALATE
     Indication: RENAL CELL CARCINOMA
     Dosage: 50 MG, BID, 2 WEEK ON, 1-WEEK OFF
     Route: 048
     Dates: start: 20130610
  3. SYNTHROID [Concomitant]
     Active Substance: LEVOTHYROXINE SODIUM
     Indication: HYPOTHYROIDISM
     Dosage: 25 UG, DAILY
  4. SUTENT [Suspect]
     Active Substance: SUNITINIB MALATE
     Dosage: 50 MG, CYCLIC  (TWICE DAILY, 2- WEEK ON, 1-WEEK OFF) (CYCLE 9)
     Route: 048
     Dates: start: 20140503
  5. SYNTHROID [Concomitant]
     Active Substance: LEVOTHYROXINE SODIUM
     Dosage: 75 UG, DAILY
  6. PROTONIX [Concomitant]
     Active Substance: PANTOPRAZOLE SODIUM
     Indication: GASTROOESOPHAGEAL REFLUX DISEASE
     Dosage: 40 MG, DAILY

REACTIONS (16)
  - Hypothyroidism [Unknown]
  - Proctalgia [Unknown]
  - Anal ulcer [Unknown]
  - Palmar-plantar erythrodysaesthesia syndrome [Recovered/Resolved]
  - Fatigue [Unknown]
  - Haemorrhoids [Unknown]
  - Tooth infection [Recovered/Resolved]
  - Skin irritation [Unknown]
  - Diarrhoea [Unknown]
  - Ear pain [Recovering/Resolving]
  - Vitamin D deficiency [Unknown]
  - Muscle atrophy [Recovered/Resolved]
  - Anal fissure [Unknown]
  - Ear infection [Unknown]
  - Bone lesion [Unknown]
  - Bacterial infection [Unknown]

NARRATIVE: CASE EVENT DATE: 20140418
